FAERS Safety Report 19012070 (Version 1)
Quarter: 2021Q1

REPORT INFORMATION
  Report Type: Spontaneous
  Country: US (occurrence: US)
  Receive Date: 20210315
  Receipt Date: 20210315
  Transmission Date: 20210420
  Serious: Yes (Life-Threatening, Hospitalization)
  Sender: FDA-Public Use
  Company Number: US-LUPIN PHARMACEUTICALS INC.-2021-03254

PATIENT
  Age: 75 Year
  Sex: Male

DRUGS (32)
  1. FLUDROCORTISONE [Suspect]
     Active Substance: FLUDROCORTISONE
     Indication: GLOSSOPHARYNGEAL NEURALGIA
     Dosage: UNK (STOPPED)
     Route: 065
     Dates: start: 2019
  2. PSEUDOEPHEDRINE. [Suspect]
     Active Substance: PSEUDOEPHEDRINE HYDROCHLORIDE
     Indication: GLOSSOPHARYNGEAL NEURALGIA
     Dosage: UNK (STOPPED)
     Route: 065
     Dates: start: 2019
  3. CARBAMAZEPINE. [Suspect]
     Active Substance: CARBAMAZEPINE
     Indication: ANGIOPATHY
  4. DROXIDOPA [Suspect]
     Active Substance: DROXIDOPA
     Indication: GLOSSOPHARYNGEAL NEURALGIA
     Dosage: UNK (STOPPED)
     Route: 065
     Dates: start: 2019
  5. MEXILETINE [Suspect]
     Active Substance: MEXILETINE
     Indication: ANGIOPATHY
  6. PYRIDOSTIGMINE [Suspect]
     Active Substance: PYRIDOSTIGMINE
     Indication: ANGIOPATHY
  7. PSEUDOEPHEDRINE. [Suspect]
     Active Substance: PSEUDOEPHEDRINE HYDROCHLORIDE
     Indication: ANGIOPATHY
  8. GABAPENTIN. [Suspect]
     Active Substance: GABAPENTIN
     Indication: ANGIOPATHY
  9. PSEUDOEPHEDRINE. [Suspect]
     Active Substance: PSEUDOEPHEDRINE HYDROCHLORIDE
     Indication: SHOCK
  10. GABAPENTIN. [Suspect]
     Active Substance: GABAPENTIN
     Indication: GLOSSOPHARYNGEAL NEURALGIA
     Dosage: UNK (STOPPED)
     Route: 065
     Dates: start: 2019
  11. GABAPENTIN. [Suspect]
     Active Substance: GABAPENTIN
     Indication: HAEMODYNAMIC INSTABILITY
  12. GABAPENTIN. [Suspect]
     Active Substance: GABAPENTIN
     Indication: SHOCK
  13. PYRIDOSTIGMINE [Suspect]
     Active Substance: PYRIDOSTIGMINE
     Indication: GLOSSOPHARYNGEAL NEURALGIA
     Dosage: UNK (STOPPED)
     Route: 065
     Dates: start: 2019
  14. THERMOTABS [DIETARY SUPPLEMENT] [Suspect]
     Active Substance: DIETARY SUPPLEMENT
     Indication: HAEMODYNAMIC INSTABILITY
  15. CARBAMAZEPINE. [Suspect]
     Active Substance: CARBAMAZEPINE
     Indication: GLOSSOPHARYNGEAL NEURALGIA
     Dosage: UNK (STOPPED)
     Route: 065
     Dates: start: 2019
  16. DROXIDOPA [Suspect]
     Active Substance: DROXIDOPA
     Indication: SHOCK
  17. MEXILETINE [Suspect]
     Active Substance: MEXILETINE
     Indication: GLOSSOPHARYNGEAL NEURALGIA
     Dosage: UNK (STOPPED)
     Route: 065
     Dates: start: 2019
  18. MEXILETINE [Suspect]
     Active Substance: MEXILETINE
     Indication: HAEMODYNAMIC INSTABILITY
  19. MEXILETINE [Suspect]
     Active Substance: MEXILETINE
     Indication: SHOCK
  20. PYRIDOSTIGMINE [Suspect]
     Active Substance: PYRIDOSTIGMINE
     Indication: SHOCK
  21. FLUDROCORTISONE [Suspect]
     Active Substance: FLUDROCORTISONE
     Indication: ANGIOPATHY
  22. PSEUDOEPHEDRINE. [Suspect]
     Active Substance: PSEUDOEPHEDRINE HYDROCHLORIDE
     Indication: HAEMODYNAMIC INSTABILITY
  23. CARBAMAZEPINE. [Suspect]
     Active Substance: CARBAMAZEPINE
     Indication: SHOCK
  24. DROXIDOPA [Suspect]
     Active Substance: DROXIDOPA
     Indication: HAEMODYNAMIC INSTABILITY
  25. DROXIDOPA [Suspect]
     Active Substance: DROXIDOPA
     Indication: ANGIOPATHY
  26. PYRIDOSTIGMINE [Suspect]
     Active Substance: PYRIDOSTIGMINE
     Indication: HAEMODYNAMIC INSTABILITY
  27. FLUDROCORTISONE [Suspect]
     Active Substance: FLUDROCORTISONE
     Indication: SHOCK
  28. THERMOTABS [DIETARY SUPPLEMENT] [Concomitant]
     Active Substance: DIETARY SUPPLEMENT
     Indication: ANGIOPATHY
  29. CARBAMAZEPINE. [Suspect]
     Active Substance: CARBAMAZEPINE
     Indication: HAEMODYNAMIC INSTABILITY
  30. FLUDROCORTISONE [Suspect]
     Active Substance: FLUDROCORTISONE
     Indication: HAEMODYNAMIC INSTABILITY
  31. THERMOTABS [DIETARY SUPPLEMENT] [Suspect]
     Active Substance: DIETARY SUPPLEMENT
     Indication: GLOSSOPHARYNGEAL NEURALGIA
     Dosage: UNK (STOPPED)
     Route: 065
     Dates: start: 2019
  32. THERMOTABS [DIETARY SUPPLEMENT] [Concomitant]
     Active Substance: DIETARY SUPPLEMENT
     Indication: SHOCK

REACTIONS (1)
  - Treatment failure [Unknown]

NARRATIVE: CASE EVENT DATE: 2019
